FAERS Safety Report 11647452 (Version 3)
Quarter: 2016Q1

REPORT INFORMATION
  Report Type: Spontaneous
  Country: US (occurrence: US)
  Receive Date: 20151021
  Receipt Date: 20160128
  Transmission Date: 20160525
  Serious: Yes (Hospitalization)
  Sender: FDA-Public Use
  Company Number: PHEH2015US021012

PATIENT
  Age: 12 Year
  Sex: Female

DRUGS (3)
  1. LUMACAFTOR [Suspect]
     Active Substance: LUMACAFTOR
     Indication: CYSTIC FIBROSIS
     Dosage: 250 MG, BID
     Route: 048
  2. TOBI [Suspect]
     Active Substance: TOBRAMYCIN
     Indication: CYSTIC FIBROSIS
     Dosage: 300 MG, BID
     Route: 055
     Dates: start: 20140707
  3. IVACAFTOR [Suspect]
     Active Substance: IVACAFTOR
     Indication: CYSTIC FIBROSIS
     Dosage: 400 MG, BID
     Route: 048

REACTIONS (2)
  - Cystic fibrosis [Unknown]
  - Disease complication [None]

NARRATIVE: CASE EVENT DATE: 20151013
